FAERS Safety Report 19555650 (Version 1)
Quarter: 2021Q3

REPORT INFORMATION
  Report Type: Report from Study
  Country: CA (occurrence: CA)
  Receive Date: 20210715
  Receipt Date: 20210715
  Transmission Date: 20211014
  Serious: Yes (Hospitalization)
  Sender: FDA-Public Use
  Company Number: CA-BAYER-2021-173229

PATIENT
  Sex: Female

DRUGS (17)
  1. CLONAZEPAM. [Concomitant]
     Active Substance: CLONAZEPAM
     Dosage: UNK
  2. CARIPUL [Concomitant]
     Active Substance: EPOPROSTENOL
     Dosage: UNK
  3. DIPHENHYDRAMINE HYDROCHLORIDE. [Concomitant]
     Active Substance: DIPHENHYDRAMINE HYDROCHLORIDE
     Dosage: UNK
  4. WARFARIN [Concomitant]
     Active Substance: WARFARIN
     Dosage: UNK
  5. ADEMPAS [Suspect]
     Active Substance: RIOCIGUAT
     Indication: PULMONARY ARTERIAL HYPERTENSION
     Dosage: 2.5 MG
     Dates: start: 20160104
  6. OPSUMIT [Concomitant]
     Active Substance: MACITENTAN
     Dosage: UNK
  7. GRAVOL [Concomitant]
     Active Substance: DIMENHYDRINATE
     Dosage: UNK
  8. AVAMYS [Concomitant]
     Active Substance: FLUTICASONE FUROATE
     Dosage: UNK
  9. STELARA [Concomitant]
     Active Substance: USTEKINUMAB
     Dosage: UNK
  10. RUPALL [Concomitant]
     Active Substance: RUPATADINE FUMARATE
     Dosage: UNK
  11. TYLENOL [Concomitant]
     Active Substance: ACETAMINOPHEN
     Dosage: UNK
  12. UPTRAVI [Concomitant]
     Active Substance: SELEXIPAG
     Dosage: UNK
  13. CIPRALEX [Concomitant]
     Active Substance: ESCITALOPRAM OXALATE
     Dosage: UNK
  14. LYRICA [Concomitant]
     Active Substance: PREGABALIN
     Dosage: UNK
  15. LOMOTIL [LOPERAMIDE HYDROCHLORIDE] [Concomitant]
     Active Substance: LOPERAMIDE HYDROCHLORIDE
     Dosage: UNK
  16. VITAMIN C [Concomitant]
     Active Substance: ASCORBIC ACID
     Dosage: UNK
  17. SALBUTAMOL [Concomitant]
     Active Substance: ALBUTEROL
     Dosage: UNK

REACTIONS (2)
  - Hospitalisation [None]
  - Hypotension [Not Recovered/Not Resolved]
